FAERS Safety Report 4477892-3 (Version None)
Quarter: 2004Q3

REPORT INFORMATION
  Report Type: 
  Country: None (occurrence: None)
  Receive Date: 20040923
  Receipt Date: 20040616
  Transmission Date: 20050211
  Serious: No
  Sender: FDA-Public Use
  Company Number: USA040670406

PATIENT
  Age: 67 Year
  Sex: Female
  Weight: 58 kg

DRUGS (4)
  1. FORTEO [Suspect]
     Indication: OSTEOPOROSIS
     Dates: start: 20040603
  2. MULTIVITAMIN [Concomitant]
  3. DETROL (TOLTERODINE) [Concomitant]
  4. SYNTHROID [Concomitant]

REACTIONS (2)
  - ARTHRALGIA [None]
  - PAIN IN EXTREMITY [None]
